FAERS Safety Report 4837271-3 (Version None)
Quarter: 2005Q4

REPORT INFORMATION
  Report Type: 
  Country: None (occurrence: None)
  Receive Date: 20051122
  Receipt Date: 20051108
  Transmission Date: 20060501
  Serious: Yes (Death)
  Sender: FDA-Public Use
  Company Number: DE-2005-020618

PATIENT
  Age: 46 Year
  Sex: Male

DRUGS (2)
  1. ULTRAVIST 150 [Suspect]
     Indication: COMPUTERISED TOMOGRAM
     Dosage: 1 DOSE
     Dates: start: 20040907, end: 20040907
  2. GASTROGRAFIN [Suspect]
     Dosage: 1 DOSE
     Dates: start: 20040907, end: 20040907

REACTIONS (2)
  - CARDIAC FAILURE [None]
  - NAUSEA [None]
